FAERS Safety Report 9813885 (Version 1)
Quarter: 2014Q1

REPORT INFORMATION
  Report Type: Spontaneous
  Country: US (occurrence: US)
  Receive Date: 20140113
  Receipt Date: 20140113
  Transmission Date: 20141002
  Serious: Yes (Death)
  Sender: FDA-Public Use
  Company Number: US-PFIZER INC-2014006140

PATIENT
  Age: 27 Year
  Sex: Female

DRUGS (5)
  1. ALPRAZOLAM [Suspect]
     Dosage: UNK
  2. CITALOPRAM [Suspect]
     Dosage: UNK
  3. METHADONE [Suspect]
     Dosage: UNK
  4. AMPHETAMINE [Suspect]
     Dosage: UNK
  5. TETRAHYDROCANNABINOL [Suspect]
     Dosage: UNK

REACTIONS (3)
  - Completed suicide [Fatal]
  - Cardiac arrest [Fatal]
  - Respiratory arrest [Fatal]
